FAERS Safety Report 8328723-2 (Version None)
Quarter: 2012Q2

REPORT INFORMATION
  Report Type: 
  Country: None (occurrence: None)
  Receive Date: 20120502
  Receipt Date: 20120424
  Transmission Date: 20120825
  Serious: Yes (Other)
  Sender: FDA-Public Use
  Company Number: JP-VERTEX PHARMACEUTICALS INC.-AE-2012-001371

PATIENT
  Age: 59 Year
  Sex: Male

DRUGS (17)
  1. DEPAS [Concomitant]
     Route: 048
  2. LOXONIN [Concomitant]
     Route: 048
     Dates: start: 20120305
  3. JANUVIA [Concomitant]
     Route: 048
  4. ALLOPURINOL [Concomitant]
     Route: 048
     Dates: start: 20120127
  5. TELAVIC (TELAPREVIR) [Suspect]
     Indication: HEPATITIS C
     Route: 048
     Dates: start: 20120120, end: 20120122
  6. REBETOL [Concomitant]
     Route: 048
     Dates: start: 20120204, end: 20120210
  7. REBETOL [Concomitant]
     Route: 048
     Dates: start: 20120211
  8. XYZAL [Concomitant]
     Route: 048
     Dates: start: 20120120
  9. SELBEX [Concomitant]
     Route: 048
     Dates: start: 20120120
  10. LIVALO [Concomitant]
     Route: 048
  11. KETOBUN [Concomitant]
     Route: 048
  12. PEG-INTRON [Concomitant]
     Route: 058
     Dates: start: 20120323
  13. REBETOL [Concomitant]
     Indication: HEPATITIS C
     Route: 048
     Dates: start: 20120120, end: 20120203
  14. LOSARTAN POTASSIUM [Concomitant]
     Route: 048
  15. AMOBAN [Concomitant]
     Route: 048
  16. TELAVIC (TELAPREVIR) [Suspect]
     Route: 048
     Dates: start: 20120125, end: 20120413
  17. PEG-INTRON [Concomitant]
     Indication: HEPATITIS C
     Route: 058
     Dates: start: 20120120, end: 20120316

REACTIONS (1)
  - RASH [None]
